FAERS Safety Report 15806424 (Version 1)
Quarter: 2019Q1

REPORT INFORMATION
  Report Type: Spontaneous
  Country: US (occurrence: US)
  Receive Date: 20190107
  Receipt Date: 20190107
  Transmission Date: 20190417
  Serious: No
  Sender: FDA-Public Use
  Company Number: None

PATIENT

DRUGS (2)
  1. ROCURONIUM BROMIDE ROCURONIUM BROMIDE [Suspect]
     Active Substance: ROCURONIUM BROMIDE
     Dosage: ?          OTHER FREQUENCY:VIAL;OTHER ROUTE:IV  VIAL?
     Route: 042
  2. ROCURONIUM BROMIDE  ROCURONIUM BROMIDE [Suspect]
     Active Substance: ROCURONIUM BROMIDE
     Dosage: ?          OTHER FREQUENCY:VIAL;OTHER ROUTE:IV VIAL ?
     Route: 042

REACTIONS (3)
  - Product label issue [None]
  - Product use complaint [None]
  - Product packaging issue [None]
